FAERS Safety Report 25374789 (Version 1)
Quarter: 2025Q2

REPORT INFORMATION
  Report Type: Spontaneous
  Country: US (occurrence: US)
  Receive Date: 20250529
  Receipt Date: 20250529
  Transmission Date: 20250717
  Serious: No
  Sender: ABBVIE
  Company Number: US-LUNDBECK-DKLU4014705

PATIENT
  Age: 49 Year

DRUGS (1)
  1. LEXAPRO [Suspect]
     Active Substance: ESCITALOPRAM OXALATE
     Indication: Anxiety

REACTIONS (4)
  - Vaginal haemorrhage [Recovered/Resolved]
  - Haemoglobin decreased [Recovered/Resolved]
  - Heavy menstrual bleeding [Recovered/Resolved]
  - Anaemia [Recovered/Resolved]
